FAERS Safety Report 24770721 (Version 1)
Quarter: 2024Q4

REPORT INFORMATION
  Report Type: Spontaneous
  Country: PT (occurrence: None)
  Receive Date: 20241224
  Receipt Date: 20241224
  Transmission Date: 20250115
  Serious: Yes (Hospitalization, Other)
  Sender: UNICHEM
  Company Number: PT-Unichem Pharmaceuticals (USA) Inc-UCM202412-001725

PATIENT
  Age: 89 Year
  Sex: Female

DRUGS (3)
  1. AMLODIPINE [Suspect]
     Active Substance: AMLODIPINE BESYLATE
     Indication: Essential hypertension
  2. ATROPINE [Concomitant]
     Active Substance: ATROPINE
     Indication: Nodal rhythm
     Dosage: UNKNOWN
  3. FUROSEMIDE [Concomitant]
     Active Substance: FUROSEMIDE
     Indication: Product used for unknown indication
     Dosage: UNKNOWN

REACTIONS (1)
  - BRASH syndrome [Recovered/Resolved]
